FAERS Safety Report 22835146 (Version 3)
Quarter: 2023Q4

REPORT INFORMATION
  Report Type: Spontaneous
  Country: US (occurrence: US)
  Receive Date: 20230818
  Receipt Date: 20231212
  Transmission Date: 20240110
  Serious: No
  Sender: FDA-Public Use
  Company Number: US-SA-SAC20230816001295

PATIENT
  Age: 63 Year
  Sex: Female
  Weight: 62.59 kg

DRUGS (9)
  1. DUPIXENT [Suspect]
     Active Substance: DUPILUMAB
     Indication: Dermatitis atopic
     Dosage: 300 MG; FREQUENCY: OTHER
     Route: 058
     Dates: start: 20200303
  2. DUPIXENT [Suspect]
     Active Substance: DUPILUMAB
     Dosage: UNK, 1X
     Route: 058
  3. DUPIXENT [Suspect]
     Active Substance: DUPILUMAB
     Dosage: 300 MG, QOW
     Route: 058
  4. AMLODIPINE [Concomitant]
     Active Substance: AMLODIPINE BESYLATE
  5. PRILOSEC [Concomitant]
     Active Substance: OMEPRAZOLE MAGNESIUM
  6. ALBUTEROL [Concomitant]
     Active Substance: ALBUTEROL
  7. ROSUVASTATIN [Concomitant]
     Active Substance: ROSUVASTATIN
  8. POTASSIUM [Concomitant]
     Active Substance: POTASSIUM
  9. MAGNESIUM [Concomitant]
     Active Substance: MAGNESIUM

REACTIONS (4)
  - Platelet count abnormal [Not Recovered/Not Resolved]
  - Vision blurred [Unknown]
  - Diplopia [Unknown]
  - Eczema [Unknown]

NARRATIVE: CASE EVENT DATE: 20210101
